FAERS Safety Report 17135337 (Version 2)
Quarter: 2020Q4

REPORT INFORMATION
  Report Type: Spontaneous
  Country: US (occurrence: US)
  Receive Date: 20191210
  Receipt Date: 20201119
  Transmission Date: 20210113
  Serious: No
  Sender: FDA-Public Use
  Company Number: US-PFIZER INC-2019425968

PATIENT
  Age: 64 Year
  Sex: Female
  Weight: 66 kg

DRUGS (7)
  1. EXEMESTANE. [Concomitant]
     Active Substance: EXEMESTANE
     Indication: BLOOD GROWTH HORMONE
     Dosage: 25 MG, 1X/DAY
  2. IBRANCE [Suspect]
     Active Substance: PALBOCICLIB
     Dosage: 100 MG, CYCLIC [3 WEEKS ON AND 1 WEEK OFF; REPEAT EVERY 4]
     Route: 048
  3. GABAPENTIN. [Concomitant]
     Active Substance: GABAPENTIN
     Indication: NIGHT SWEATS
     Dosage: 300 MG, 1X/DAY (AT BEDTIME)
  4. IBRANCE [Suspect]
     Active Substance: PALBOCICLIB
     Indication: BREAST CANCER FEMALE
     Dosage: 125 MG, CYCLIC, [125 MG EVERY DAY FOR THREE WEEKS AND ONE WEEK OFF]
     Dates: start: 201903, end: 2019
  5. LETROZOLE. [Concomitant]
     Active Substance: LETROZOLE
     Dosage: UNK
  6. LAMOTRIGINE. [Concomitant]
     Active Substance: LAMOTRIGINE
     Indication: SEIZURE
     Dosage: 450 MG, DAILY (TWO TABLETS IN THE MORNING AND ONE IN THE EVENING)
  7. TRAZODONE [Concomitant]
     Active Substance: TRAZODONE HYDROCHLORIDE
     Indication: INSOMNIA
     Dosage: 75 MG, 1X/DAY (50 MG ONE AND A HALF AT BEDTIME)

REACTIONS (3)
  - Red blood cell count decreased [Unknown]
  - Blood count abnormal [Unknown]
  - White blood cell count decreased [Unknown]

NARRATIVE: CASE EVENT DATE: 2019
